FAERS Safety Report 7551513-5 (Version None)
Quarter: 2011Q2

REPORT INFORMATION
  Report Type: 
  Country: None (occurrence: None)
  Receive Date: 20110616
  Receipt Date: 20110609
  Transmission Date: 20111010
  Serious: Yes (Other)
  Sender: FDA-Public Use
  Company Number: US-PFIZER INC-2011076555

PATIENT
  Sex: Female
  Weight: 63.5 kg

DRUGS (5)
  1. ZOCOR [Concomitant]
     Dosage: 20 MG, DAILY
  2. PREMARIN [Suspect]
     Indication: PROPHYLAXIS URINARY TRACT INFECTION
  3. PREMARIN [Suspect]
     Indication: URETHRAL DISORDER
  4. ZANTAC [Concomitant]
     Dosage: 25 MG, DAILY
  5. PREMARIN [Suspect]
     Indication: OFF LABEL USE
     Dosage: 0.5 MG, 2X/WEEK
     Route: 067

REACTIONS (1)
  - URINARY TRACT INFECTION [None]
